FAERS Safety Report 13442659 (Version 1)
Quarter: 2017Q2

REPORT INFORMATION
  Report Type: Spontaneous
  Country: US (occurrence: US)
  Receive Date: 20170413
  Receipt Date: 20170413
  Transmission Date: 20170830
  Serious: Yes (Life-Threatening)
  Sender: FDA-Public Use
  Company Number: None

PATIENT
  Age: 56 Year
  Sex: Male

DRUGS (1)
  1. PROTAMINE SULFATE. [Suspect]
     Active Substance: PROTAMINE SULFATE
     Indication: VASCULAR OPERATION
     Route: 042
     Dates: start: 20170330, end: 20170330

REACTIONS (5)
  - Hypotension [None]
  - Cardio-respiratory arrest [None]
  - Arrhythmia [None]
  - Dehydration [None]
  - Anaemia [None]

NARRATIVE: CASE EVENT DATE: 20170330
